FAERS Safety Report 25394947 (Version 1)
Quarter: 2025Q2

REPORT INFORMATION
  Report Type: Spontaneous
  Country: BR (occurrence: BR)
  Receive Date: 20250604
  Receipt Date: 20250604
  Transmission Date: 20250716
  Serious: Yes (Other)
  Sender: ROCHE
  Company Number: BR-ROCHE-10000295456

PATIENT
  Age: 64 Year
  Sex: Female

DRUGS (3)
  1. ATEZOLIZUMAB [Suspect]
     Active Substance: ATEZOLIZUMAB
     Indication: Small cell lung cancer
     Route: 065
  2. CARBOPLATIN [Concomitant]
     Active Substance: CARBOPLATIN
     Indication: Small cell lung cancer
  3. ETOPOSIDE [Concomitant]
     Active Substance: ETOPOSIDE
     Indication: Small cell lung cancer

REACTIONS (6)
  - Weight decreased [Unknown]
  - Loss of personal independence in daily activities [Unknown]
  - Meningioma [Unknown]
  - Radiation injury [Unknown]
  - Lung neoplasm [Unknown]
  - Vasogenic cerebral oedema [Unknown]

NARRATIVE: CASE EVENT DATE: 20230201
